FAERS Safety Report 5400396-8 (Version None)
Quarter: 2007Q3

REPORT INFORMATION
  Report Type: 
  Country: None (occurrence: None)
  Receive Date: 20070730
  Receipt Date: 20070719
  Transmission Date: 20080115
  Serious: Yes (Hospitalization)
  Sender: FDA-Public Use
  Company Number: B0479117A

PATIENT
  Age: 60 Year
  Sex: Female
  Weight: 86.6 kg

DRUGS (8)
  1. LAPATINIB [Suspect]
     Dosage: 1250MG PER DAY
     Route: 048
     Dates: start: 20070512, end: 20070713
  2. CAPECITABINE [Suspect]
     Dosage: 3000MG PER DAY
     Route: 048
     Dates: start: 20070512
  3. DEXAMETHASONE [Concomitant]
     Dosage: 4MG THREE TIMES PER DAY
     Route: 048
     Dates: start: 20070502
  4. FENTANYL [Concomitant]
     Dosage: 12.6MG PER DAY
     Route: 062
     Dates: start: 20070530
  5. DOXEPIN HCL [Concomitant]
     Indication: DEPRESSION
     Dosage: 10MG PER DAY
     Route: 048
     Dates: start: 20070129
  6. MIANSERIN HYDROCHLORIDE [Concomitant]
     Indication: DEPRESSION
     Dosage: 60MG PER DAY
     Route: 048
     Dates: start: 20070502
  7. ZOLPIDEM TARTRATE [Concomitant]
     Dosage: 10MG FOUR TIMES PER DAY
     Route: 048
     Dates: start: 20070328
  8. PANTOPRAZOLE SODIUM [Concomitant]
     Dosage: 20MG FOUR TIMES PER DAY
     Route: 048
     Dates: start: 20070502

REACTIONS (5)
  - CONFUSIONAL STATE [None]
  - DISORIENTATION [None]
  - GENERAL PHYSICAL HEALTH DETERIORATION [None]
  - HYPOKALAEMIA [None]
  - PARESIS [None]
